FAERS Safety Report 14107433 (Version 2)
Quarter: 2018Q1

REPORT INFORMATION
  Report Type: Spontaneous
  Country: FR (occurrence: FR)
  Receive Date: 20171019
  Receipt Date: 20180201
  Transmission Date: 20180508
  Serious: Yes (Death, Life-Threatening, Hospitalization, Other)
  Sender: FDA-Public Use
  Company Number: FR-SA-2017SA199622

PATIENT
  Age: 65 Year
  Sex: Male

DRUGS (10)
  1. CEFAZOLIN [Interacting]
     Active Substance: CEFAZOLIN
     Indication: ENDOCARDITIS STAPHYLOCOCCAL
     Route: 042
  2. DAPTOMYCIN. [Concomitant]
     Active Substance: DAPTOMYCIN
     Indication: ENDOCARDITIS STAPHYLOCOCCAL
     Route: 065
  3. GENTAMICIN. [Concomitant]
     Active Substance: GENTAMICIN
     Indication: STAPHYLOCOCCAL INFECTION
     Route: 065
  4. RIFAMPICIN [Suspect]
     Active Substance: RIFAMPIN
     Indication: ENDOCARDITIS STAPHYLOCOCCAL
     Route: 065
  5. RIFAMPICIN [Interacting]
     Active Substance: RIFAMPIN
     Indication: ENDOCARDITIS STAPHYLOCOCCAL
     Route: 065
  6. DAPTOMYCIN. [Concomitant]
     Active Substance: DAPTOMYCIN
     Indication: STAPHYLOCOCCAL INFECTION
     Route: 065
  7. CEFAZOLIN [Interacting]
     Active Substance: CEFAZOLIN
     Indication: STAPHYLOCOCCAL INFECTION
     Route: 042
  8. RIFAMPICIN [Interacting]
     Active Substance: RIFAMPIN
     Indication: STAPHYLOCOCCAL INFECTION
     Route: 065
  9. RIFAMPICIN [Interacting]
     Active Substance: RIFAMPIN
     Indication: STAPHYLOCOCCAL INFECTION
     Route: 065
  10. GENTAMICIN. [Concomitant]
     Active Substance: GENTAMICIN
     Indication: ENDOCARDITIS STAPHYLOCOCCAL
     Route: 065

REACTIONS (12)
  - Hypovitaminosis [Recovered/Resolved]
  - Prothrombin level decreased [Recovered/Resolved]
  - Haemorrhage [Fatal]
  - Drug interaction [Unknown]
  - Vitamin K deficiency [Recovered/Resolved]
  - Coagulation factor VII level decreased [Recovered/Resolved]
  - Coagulation factor X level decreased [Recovered/Resolved]
  - Hypoprothrombinaemia [Recovered/Resolved]
  - Haemoglobin decreased [Unknown]
  - Pericardial haemorrhage [Fatal]
  - Shock [Fatal]
  - Multiple organ dysfunction syndrome [Fatal]
